FAERS Safety Report 5913257-2 (Version None)
Quarter: 2008Q4

REPORT INFORMATION
  Report Type: 
  Country: None (occurrence: None)
  Receive Date: 20081008
  Receipt Date: 20081008
  Transmission Date: 20090506
  Serious: No
  Sender: FDA-Public Use
  Company Number: None

PATIENT
  Age: 36 Year
  Sex: Male
  Weight: 138.3471 kg

DRUGS (1)
  1. SINGULAIR [Suspect]
     Indication: MULTIPLE ALLERGIES
     Dosage: 10MG ONE DAILY
     Dates: start: 20080927, end: 20080929

REACTIONS (3)
  - CRYING [None]
  - DEPRESSION [None]
  - MOOD SWINGS [None]
